FAERS Safety Report 23942541 (Version 1)
Quarter: 2024Q2

REPORT INFORMATION
  Report Type: Report from Study
  Country: AT (occurrence: AT)
  Receive Date: 20240605
  Receipt Date: 20240605
  Transmission Date: 20240716
  Serious: Yes (Other)
  Sender: FDA-Public Use
  Company Number: AT-SA-SAC20240530000916

PATIENT
  Age: 51 Year
  Sex: Female

DRUGS (1)
  1. TERIFLUNOMIDE [Suspect]
     Active Substance: TERIFLUNOMIDE
     Dosage: UNK

REACTIONS (2)
  - Hypertensive crisis [Unknown]
  - Angiopathy [Recovered/Resolved]

NARRATIVE: CASE EVENT DATE: 20200310
